FAERS Safety Report 12173565 (Version 1)
Quarter: 2016Q1

REPORT INFORMATION
  Report Type: Spontaneous
  Country: US (occurrence: None)
  Receive Date: 20160311
  Receipt Date: 20160311
  Transmission Date: 20160526
  Serious: Yes (Death)
  Sender: FDA-Public Use
  Company Number: None

PATIENT
  Sex: Male
  Weight: 66.8 kg

DRUGS (15)
  1. LACTULOSE. [Concomitant]
     Active Substance: LACTULOSE
  2. RIBAVIRIN. [Suspect]
     Active Substance: RIBAVIRIN
     Indication: HEPATITIS C
     Route: 048
     Dates: start: 20160216, end: 20160229
  3. SPRIVA WITH HANDIHALER [Concomitant]
  4. BACLOFEN. [Concomitant]
     Active Substance: BACLOFEN
  5. HYDROCODONE BITARTRATE AND ACETAMINOPHEN [Concomitant]
     Active Substance: ACETAMINOPHEN\HYDROCODONE BITARTRATE
  6. MELOXICAM. [Concomitant]
     Active Substance: MELOXICAM
  7. OXYBUTYNIN CHLORIDE. [Concomitant]
     Active Substance: OXYBUTYNIN CHLORIDE
  8. VIEKIRA PAK [Suspect]
     Active Substance: DASABUVIR\OMBITASVIR\PARITAPREVIR\RITONAVIR
     Indication: HEPATITIS C
     Dosage: 12.5/75/250 MG BID PO
     Route: 048
     Dates: start: 20160216, end: 20160229
  9. ASPIRIN. [Concomitant]
     Active Substance: ASPIRIN
  10. FLUTICASONE [Concomitant]
     Active Substance: FLUTICASONE\FLUTICASONE PROPIONATE
  11. KLONOPIN [Concomitant]
     Active Substance: CLONAZEPAM
  12. SINGULAIR [Concomitant]
     Active Substance: MONTELUKAST SODIUM
  13. OXYBUTYNIN [Concomitant]
     Active Substance: OXYBUTYNIN
  14. XIFAXAN [Concomitant]
     Active Substance: RIFAXIMIN
  15. VENTOLIN HFA [Concomitant]
     Active Substance: ALBUTEROL SULFATE

REACTIONS (2)
  - Completed suicide [None]
  - Gun shot wound [None]

NARRATIVE: CASE EVENT DATE: 20160229
